FAERS Safety Report 9154756 (Version 1)
Quarter: 2013Q1

REPORT INFORMATION
  Report Type: Spontaneous
  Country: US (occurrence: None)
  Receive Date: 20130308
  Receipt Date: 20130308
  Transmission Date: 20140127
  Serious: Yes (Life-Threatening)
  Sender: FDA-Public Use
  Company Number: None

PATIENT
  Sex: Female
  Weight: 88 kg

DRUGS (1)
  1. CLARITHROMYCIN [Suspect]
     Indication: HYPERSENSITIVITY
     Dosage: 1 500 MG TWICE PER DAY X2 DAILY ORALLY
     Route: 048
     Dates: start: 20121206, end: 20121218

REACTIONS (2)
  - Abdominal pain upper [None]
  - Nausea [None]
